FAERS Safety Report 9232613 (Version 1)
Quarter: 2013Q2

REPORT INFORMATION
  Report Type: Spontaneous
  Country: US (occurrence: None)
  Receive Date: 20130415
  Receipt Date: 20130415
  Transmission Date: 20140414
  Serious: No
  Sender: FDA-Public Use
  Company Number: None

PATIENT
  Sex: 0

DRUGS (1)
  1. TUBERSOL [Suspect]
     Indication: MYCOBACTERIUM TUBERCULOSIS COMPLEX TEST
     Dosage: 0.1ML ANNUALLY ID
     Route: 023
     Dates: start: 20130406, end: 20130412

REACTIONS (2)
  - Local reaction [None]
  - No reaction on previous exposure to drug [None]
